FAERS Safety Report 10592814 (Version 2)
Quarter: 2014Q4

REPORT INFORMATION
  Report Type: Spontaneous
  Country: MY (occurrence: MY)
  Receive Date: 20141119
  Receipt Date: 20141119
  Transmission Date: 20150529
  Serious: Yes (Hospitalization, Other)
  Sender: FDA-Public Use
  Company Number: MY-PFIZER INC-2014149375

PATIENT
  Age: 49 Year
  Sex: Female
  Weight: 65 kg

DRUGS (8)
  1. GLICLAZIDE [Concomitant]
     Active Substance: GLICLAZIDE
     Dosage: 40 MG, 2X/DAY
     Dates: end: 20130418
  2. FOLIC ACID. [Concomitant]
     Active Substance: FOLIC ACID
     Dosage: 5 MG, 1X/DAY
     Dates: end: 20130415
  3. LOVASTATIN. [Concomitant]
     Active Substance: LOVASTATIN
     Dosage: 20 MG, 1X/DAY (AT NIGHT)
     Dates: end: 20130418
  4. METFORMIN [Concomitant]
     Active Substance: METFORMIN HYDROCHLORIDE
     Dosage: 1 G, 2X/DAY
     Dates: end: 20130418
  5. PERINDOPRIL [Concomitant]
     Active Substance: PERINDOPRIL
     Indication: HYPERTENSION
     Dosage: 4 MG, 1X/DAY
  6. DILANTIN [Suspect]
     Active Substance: PHENYTOIN
     Indication: SEIZURE
     Dosage: 300 MG, DAILY
     Route: 048
     Dates: start: 201303, end: 20130418
  7. RANITIDINE [Concomitant]
     Active Substance: RANITIDINE\RANITIDINE HYDROCHLORIDE
     Indication: GASTRIC DISORDER
     Dosage: 150 MG, 2X/DAY
     Dates: end: 20130418
  8. ASPIRIN. [Concomitant]
     Active Substance: ASPIRIN
     Dosage: 150 MG, 1X/DAY
     Dates: end: 20130418

REACTIONS (14)
  - Blindness [Unknown]
  - Jaundice [Unknown]
  - Blood alkaline phosphatase increased [Unknown]
  - Pruritus generalised [Unknown]
  - Dry skin [Unknown]
  - Lip swelling [Unknown]
  - Feeling hot [Unknown]
  - Erythema [Unknown]
  - Swollen tongue [Unknown]
  - Alanine aminotransferase increased [Unknown]
  - Exfoliative rash [Unknown]
  - Glossitis [Unknown]
  - Blood bilirubin increased [Unknown]
  - Skin discolouration [Unknown]

NARRATIVE: CASE EVENT DATE: 20130415
